FAERS Safety Report 4341927-9 (Version None)
Quarter: 2004Q2

REPORT INFORMATION
  Report Type: 
  Country: None (occurrence: None)
  Receive Date: 20040415
  Receipt Date: 20040408
  Transmission Date: 20050107
  Serious: Yes (Hospitalization)
  Sender: FDA-Public Use
  Company Number: A20040209

PATIENT
  Age: 39 Year
  Sex: Female

DRUGS (3)
  1. CRAVIT OPTHALMIC SOLUTION (0.5% LEVOFLOXACIN OPHTHALMIC SOLUTION) [Suspect]
     Indication: KERATITIS
     Dosage: 1 DROP INTRAOCULAR INSTILLATION
     Route: 031
     Dates: start: 20040326, end: 20040326
  2. BENOXIL 0.4% OSLUTION (0.4% OXYBUPROCAINE HYDROCHLORIDE OPHTHALMIC SOL [Suspect]
     Indication: KERATITIS
     Dosage: 1 DROP INTRAOCULAR INSTILLATION
     Route: 031
     Dates: start: 20040326, end: 20040326
  3. FLOURES TEST PAPER (FLUORESCEIN SODIUM TEST PAPER) [Suspect]
     Indication: OPHTHALMOLOGICAL EXAMINATION
     Dosage: 1 PIECE INTRAOCULAR INSTILLATION
     Dates: start: 20040326, end: 20040326

REACTIONS (4)
  - CONJUNCTIVAL OEDEMA [None]
  - DYSPNOEA [None]
  - EYELID OEDEMA [None]
  - LARYNGEAL OEDEMA [None]
